FAERS Safety Report 6272676-8 (Version None)
Quarter: 2009Q3

REPORT INFORMATION
  Report Type: 
  Country: None (occurrence: None)
  Receive Date: 20090716
  Receipt Date: 20090716
  Transmission Date: 20100115
  Serious: Yes (Other)
  Sender: FDA-Public Use
  Company Number: None

PATIENT
  Sex: Female
  Weight: 62.7 kg

DRUGS (1)
  1. NUVARING [Suspect]
     Indication: CONTRACEPTION
     Dosage: ETONOGESTREL/ERTHINYL ESTRADIOL 1 PER MONTH VAGINAL 066
     Dates: start: 20090401, end: 20090705

REACTIONS (4)
  - CRYING [None]
  - HEADACHE [None]
  - MOOD SWINGS [None]
  - SOCIAL AVOIDANT BEHAVIOUR [None]
